FAERS Safety Report 8976219 (Version 2)
Quarter: 2012Q4

REPORT INFORMATION
  Report Type: 
  Country: ES (occurrence: ES)
  Receive Date: 20121220
  Receipt Date: 20121227
  Transmission Date: 20130627
  Serious: Yes (Death, Hospitalization)
  Sender: FDA-Public Use
  Company Number: ES-009507513-1212ESP005907

PATIENT
  Age: 56 Year
  Sex: Female
  Weight: 55.5 kg

DRUGS (4)
  1. VICTRELIS [Suspect]
     Indication: CHRONIC HEPATITIS C
     Dosage: 800 mg, tid
     Route: 048
     Dates: start: 20121002, end: 20121125
  2. COPEGUS [Suspect]
     Indication: CHRONIC HEPATITIS C
     Dosage: 1000 mg, qd, film coated tablets
     Route: 048
     Dates: start: 20120831, end: 20121125
  3. PEGASYS [Suspect]
     Indication: CHRONIC HEPATITIS C
     Dosage: 180 Microgram, qw
     Route: 058
     Dates: start: 20120831, end: 20121125
  4. AUGMENTIN [Concomitant]
     Indication: PHARYNGITIS
     Dosage: 500 milligram per 125 milligram, tid
     Route: 048
     Dates: start: 20121106, end: 20121125

REACTIONS (1)
  - Pneumonia [Fatal]
